FAERS Safety Report 22226086 (Version 1)
Quarter: 2023Q2

REPORT INFORMATION
  Report Type: Spontaneous
  Country: GR (occurrence: GR)
  Receive Date: 20230419
  Receipt Date: 20230419
  Transmission Date: 20230721
  Serious: Yes (Death, Hospitalization)
  Sender: FDA-Public Use
  Company Number: GR-STRIDES ARCOLAB LIMITED-2023SP005514

PATIENT
  Age: 50 Year
  Sex: Male

DRUGS (3)
  1. DOXYCYCLINE [Suspect]
     Active Substance: DOXYCYCLINE
     Indication: Brucellosis
     Dosage: 100 MILLIGRAM, BID
     Route: 065
  2. CIPROFLOXACIN [Suspect]
     Active Substance: CIPROFLOXACIN
     Indication: Brucellosis
     Dosage: 500 MILLIGRAM, BID
     Route: 065
  3. RIFAMPIN [Suspect]
     Active Substance: RIFAMPIN
     Indication: Brucellosis
     Dosage: 600 MILLIGRAM PER DAY
     Route: 065

REACTIONS (3)
  - Death [Fatal]
  - Hepatic encephalopathy [Not Recovered/Not Resolved]
  - Hepatotoxicity [Not Recovered/Not Resolved]
